FAERS Safety Report 10503510 (Version 3)
Quarter: 2015Q1

REPORT INFORMATION
  Report Type: Spontaneous
  Country: JP (occurrence: JP)
  Receive Date: 20141008
  Receipt Date: 20150113
  Transmission Date: 20150720
  Serious: Yes (Hospitalization, Other)
  Sender: FDA-Public Use
  Company Number: JP-TAKEDA-2014TJP001016

PATIENT
  Age: 94 Year
  Sex: Female
  Weight: 37 kg

DRUGS (18)
  1. CONIEL [Concomitant]
     Active Substance: BENIDIPINE HYDROCHLORIDE
     Dosage: 4 MG, QD
     Route: 048
     Dates: start: 20140115
  2. YOKUKAN-SAN [Concomitant]
     Active Substance: UNSPECIFIED INGREDIENT
     Dosage: 1 DF, BID
     Route: 048
     Dates: start: 20140115, end: 20140123
  3. ALDACTONE [Concomitant]
     Active Substance: SPIRONOLACTONE
     Dosage: 12.5 MG, QD
     Route: 048
     Dates: start: 201103
  4. ALOSITOL [Concomitant]
     Active Substance: ALLOPURINOL
     Dosage: 100 MG, BID
     Route: 048
     Dates: start: 201103
  5. CALONAL [Concomitant]
     Active Substance: ACETAMINOPHEN
     Dosage: 400 MG, TID
     Route: 048
     Dates: start: 20140124
  6. TAKEPRON OD TABLETS 15 [Suspect]
     Active Substance: LANSOPRAZOLE
     Indication: PRODUCT USED FOR UNKNOWN INDICATION
     Dosage: 15 MG, QD
     Route: 048
     Dates: start: 2007, end: 200912
  7. TAKEPRON OD TABLETS 15 [Suspect]
     Active Substance: LANSOPRAZOLE
     Dosage: 15 MG, QD
     Route: 048
     Dates: start: 201103, end: 20140109
  8. TAKEPRON OD TABLETS 15 [Suspect]
     Active Substance: LANSOPRAZOLE
     Dosage: 30 MG, QD
     Route: 048
     Dates: start: 20140110
  9. NU-LOTAN [Concomitant]
     Active Substance: LOSARTAN POTASSIUM
     Dosage: 12.5 MG, QD
     Route: 048
     Dates: start: 201103
  10. LIPITOR [Concomitant]
     Active Substance: ATORVASTATIN CALCIUM
     Dosage: 10 MG, QD
     Route: 048
     Dates: start: 201103
  11. ARICEPT [Concomitant]
     Active Substance: DONEPEZIL HYDROCHLORIDE
     Dosage: 5 MG, QD
     Route: 048
     Dates: start: 201103
  12. HALFDIGOXIN [Concomitant]
     Active Substance: DIGOXIN
     Dosage: 0.125 MG, QD
     Route: 048
     Dates: start: 201103
  13. LINAGLIPTIN [Concomitant]
     Active Substance: LINAGLIPTIN
     Dosage: 5 MG, QD
     Route: 048
     Dates: start: 20140118
  14. BAYASPIRIN [Concomitant]
     Active Substance: ASPIRIN
     Dosage: 100 MG, QD
     Route: 048
     Dates: start: 201103
  15. JUVELA N [Concomitant]
     Active Substance: TOCOPHERYL NICOTINATE, D-.ALPHA.
     Dosage: 100 MG, TID
     Route: 048
     Dates: start: 201103
  16. AUGMENTIN [Suspect]
     Active Substance: AMOXICILLIN\CLAVULANATE POTASSIUM
     Indication: PNEUMONIA ASPIRATION
     Dosage: 250 MG, QD
     Route: 048
     Dates: start: 20140122, end: 20140129
  17. REMINYL [Concomitant]
     Active Substance: GALANTAMINE
     Dosage: 4 MG, BID
     Route: 048
     Dates: start: 20140115
  18. BAYASPIRIN [Concomitant]
     Active Substance: ASPIRIN
     Dosage: 100 MG, QD
     Route: 048
     Dates: start: 20140115

REACTIONS (7)
  - Tongue discolouration [Recovered/Resolved]
  - Renal disorder [Unknown]
  - Upper gastrointestinal haemorrhage [Unknown]
  - Urinary tract infection [Unknown]
  - Acute kidney injury [Unknown]
  - Cardiac failure [Unknown]
  - Altered state of consciousness [Unknown]

NARRATIVE: CASE EVENT DATE: 200912
